FAERS Safety Report 22587201 (Version 1)
Quarter: 2023Q2

REPORT INFORMATION
  Report Type: Spontaneous
  Country: US (occurrence: US)
  Receive Date: 20230612
  Receipt Date: 20230612
  Transmission Date: 20230722
  Serious: Yes (Other)
  Sender: FDA-Public Use
  Company Number: US-BRISTOL-MYERS SQUIBB COMPANY-2023-081789

PATIENT
  Age: 74 Year
  Sex: Female

DRUGS (1)
  1. POMALYST [Suspect]
     Active Substance: POMALIDOMIDE
     Indication: Plasma cell myeloma
     Dosage: POMALYST 1 DAY ON 2 DAYS OFF
     Route: 048

REACTIONS (4)
  - White blood cell count decreased [Recovered/Resolved]
  - Renal failure [Recovered/Resolved]
  - Fluid retention [Unknown]
  - Off label use [Unknown]
